FAERS Safety Report 7079495-3 (Version None)
Quarter: 2010Q4

REPORT INFORMATION
  Report Type: 
  Country: None (occurrence: None)
  Receive Date: 20101102
  Receipt Date: 20101020
  Transmission Date: 20110411
  Serious: Yes (Hospitalization)
  Sender: FDA-Public Use
  Company Number: JP-ELI_LILLY_AND_COMPANY-JP201010000629

PATIENT
  Sex: Male

DRUGS (4)
  1. ZYPREXA [Suspect]
     Dosage: 10 MG, DAILY (1/D)
     Route: 048
  2. HIRNAMIN [Concomitant]
     Dosage: 1.2 G, UNKNOWN
     Route: 048
  3. SERENACE [Concomitant]
     Dosage: 9 G, UNKNOWN
     Route: 048
  4. LODOPIN [Concomitant]
     Dosage: 2.85 G, UNKNOWN
     Route: 048

REACTIONS (1)
  - CHOLELITHIASIS [None]
